FAERS Safety Report 6523597-4 (Version None)
Quarter: 2009Q4

REPORT INFORMATION
  Report Type: 
  Country: None (occurrence: None)
  Receive Date: 20091231
  Receipt Date: 20091222
  Transmission Date: 20100525
  Serious: Yes (Hospitalization, Other)
  Sender: FDA-Public Use
  Company Number: PHHY2009US57919

PATIENT
  Sex: Female

DRUGS (8)
  1. EXELON [Suspect]
     Indication: DEMENTIA ALZHEIMER'S TYPE
     Dosage: 9.2MG
     Route: 048
     Dates: start: 20090902, end: 20091017
  2. EXELON [Suspect]
     Indication: DEMENTIA ALZHEIMER'S TYPE
     Dosage: 4.6MG, UNK
     Dates: start: 20090804, end: 20090902
  3. NAMENDA [Suspect]
     Indication: BLOOD PRESSURE
     Dosage: 10MG, UNK
     Route: 048
  4. PLAVIX [Concomitant]
  5. LOVASTATIN [Concomitant]
     Indication: ARTERIOSCLEROSIS CORONARY ARTERY
  6. LEVOXYL [Concomitant]
  7. LASIX [Concomitant]
  8. COREG [Concomitant]

REACTIONS (4)
  - ANGINA PECTORIS [None]
  - CARDIAC FAILURE CONGESTIVE [None]
  - DYSPNOEA [None]
  - MYOCARDIAL INFARCTION [None]
